FAERS Safety Report 9553856 (Version 1)
Quarter: 2013Q3

REPORT INFORMATION
  Report Type: Spontaneous
  Country: US (occurrence: None)
  Receive Date: 20130924
  Receipt Date: 20130924
  Transmission Date: 20140515
  Serious: No
  Sender: FDA-Public Use
  Company Number: None

PATIENT
  Age: 69 Year
  Sex: Female
  Weight: 64.41 kg

DRUGS (8)
  1. TRAMADOL HCL [Suspect]
     Indication: BACK PAIN
     Dosage: 2 PILLS
     Route: 048
     Dates: end: 20130901
  2. GLIPIZIDE ER 10MG [Concomitant]
  3. ONGLYZA 5 MG TAB [Concomitant]
  4. BENAZEPRIL 40 MG [Concomitant]
  5. HYDROCHOLOTHIZIDE 25 MG [Concomitant]
  6. VITAMIN D [Concomitant]
  7. ALPRAZOLAM 0.5 [Concomitant]
  8. HYDROCODONE-APAP 5-500 [Concomitant]

REACTIONS (3)
  - Dry skin [None]
  - Skin wrinkling [None]
  - Pain [None]
